FAERS Safety Report 14967341 (Version 1)
Quarter: 2018Q2

REPORT INFORMATION
  Report Type: Spontaneous
  Country: US (occurrence: US)
  Receive Date: 20180604
  Receipt Date: 20180604
  Transmission Date: 20180711
  Serious: Yes (Death, Other)
  Sender: FDA-Public Use
  Company Number: US-CHEPLA-C20170693

PATIENT
  Age: 58 Year
  Sex: Male

DRUGS (8)
  1. CYTARABINE. [Suspect]
     Active Substance: CYTARABINE
  2. ALL-TRANS RETINOIC ACID, ATRA [Suspect]
     Active Substance: TRETINOIN
     Indication: ACUTE PROMYELOCYTIC LEUKAEMIA
  3. IDARUBICIN [Suspect]
     Active Substance: IDARUBICIN
     Indication: ACUTE PROMYELOCYTIC LEUKAEMIA
  4. MITOXANTRONE [Suspect]
     Active Substance: MITOXANTRONE HYDROCHLORIDE
     Indication: ACUTE PROMYELOCYTIC LEUKAEMIA
  5. MELPHALAN. [Suspect]
     Active Substance: MELPHALAN
  6. ARSENIC TRIOXIDE, ATO [Suspect]
     Active Substance: ARSENIC TRIOXIDE
     Indication: ACUTE PROMYELOCYTIC LEUKAEMIA
  7. DAUNORUBICIN [Suspect]
     Active Substance: DAUNORUBICIN
  8. FLUDARABINE [Suspect]
     Active Substance: FLUDARABINE PHOSPHATE

REACTIONS (4)
  - Electrocardiogram QT prolonged [Unknown]
  - Pancreatic enzymes increased [Unknown]
  - Acute myeloid leukaemia [Fatal]
  - Stem cell transplant [None]
